FAERS Safety Report 18193417 (Version 2)
Quarter: 2020Q3

REPORT INFORMATION
  Report Type: Spontaneous
  Country: DE (occurrence: DE)
  Receive Date: 20200825
  Receipt Date: 20200901
  Transmission Date: 20201103
  Serious: Yes (Life-Threatening, Hospitalization)
  Sender: FDA-Public Use
  Company Number: DE-MSNLABS-2020MSNLIT00308

PATIENT
  Age: 21 Year
  Sex: Male
  Weight: 56 kg

DRUGS (3)
  1. CLONAZEPAM. [Suspect]
     Active Substance: CLONAZEPAM
     Indication: PRODUCT USED FOR UNKNOWN INDICATION
     Route: 065
  2. 3,4?METHYLENEDIOXYMETHAMPHETAMINE [Suspect]
     Active Substance: MIDOMAFETAMINE
     Indication: PRODUCT USED FOR UNKNOWN INDICATION
     Route: 065
  3. PREGABALIN CAPSULES 300 MG [Suspect]
     Active Substance: PREGABALIN
     Indication: PRODUCT USED FOR UNKNOWN INDICATION
     Route: 065

REACTIONS (19)
  - Mydriasis [Recovered/Resolved]
  - Nervous system disorder [None]
  - Platelet count decreased [None]
  - Toxicity to various agents [None]
  - Drug abuse [None]
  - Rhabdomyolysis [None]
  - Renal failure [Recovered/Resolved]
  - Hypoglycaemia [Recovered/Resolved]
  - Generalised tonic-clonic seizure [None]
  - Hyperthermia [None]
  - Gastrointestinal haemorrhage [None]
  - Dehydration [None]
  - Tachycardia [None]
  - Hepatic failure [None]
  - Hyperpyrexia [None]
  - Haemorrhage [None]
  - Haemoglobin decreased [None]
  - Coagulopathy [None]
  - Blood lactic acid increased [None]
